FAERS Safety Report 14360952 (Version 1)
Quarter: 2018Q1

REPORT INFORMATION
  Report Type: Spontaneous
  Country: US (occurrence: US)
  Receive Date: 20180107
  Receipt Date: 20180107
  Transmission Date: 20180509
  Serious: Yes (Other)
  Sender: FDA-Public Use
  Company Number: US-SHIRE-US201731944

PATIENT

DRUGS (1)
  1. XIIDRA [Suspect]
     Active Substance: LIFITEGRAST
     Indication: DRY EYE
     Route: 047

REACTIONS (15)
  - Upper-airway cough syndrome [Unknown]
  - Sinus disorder [Unknown]
  - Oropharyngeal pain [Unknown]
  - Vision blurred [Unknown]
  - Drug ineffective [Unknown]
  - Eye haemorrhage [Unknown]
  - Instillation site pain [Unknown]
  - Ocular hyperaemia [Unknown]
  - Nonspecific reaction [Unknown]
  - Instillation site reaction [Unknown]
  - Instillation site pruritus [Unknown]
  - Dry throat [Unknown]
  - Fear [Unknown]
  - Adverse drug reaction [Unknown]
  - Product taste abnormal [Unknown]

NARRATIVE: CASE EVENT DATE: 20171018
